FAERS Safety Report 8500851-8 (Version None)
Quarter: 2012Q3

REPORT INFORMATION
  Report Type: 
  Country: None (occurrence: None)
  Receive Date: 20120710
  Receipt Date: 20120703
  Transmission Date: 20120928
  Serious: Yes (Hospitalization)
  Sender: FDA-Public Use
  Company Number: JP-JNJFOC-20120611556

PATIENT
  Age: 88 Year
  Sex: Female

DRUGS (6)
  1. ADENOSINE [Concomitant]
     Indication: CEREBRAL CIRCULATORY FAILURE
     Route: 048
     Dates: start: 20080104, end: 20080110
  2. GASMOTIN [Concomitant]
     Indication: GASTROINTESTINAL HYPOMOTILITY
     Route: 048
     Dates: start: 20080104, end: 20080623
  3. ETHYL ICOSAPENTATE [Concomitant]
     Indication: PROPHYLAXIS
     Route: 048
     Dates: start: 20080104, end: 20080110
  4. NIVADIL [Concomitant]
     Indication: HYPERTENSION
     Route: 048
     Dates: start: 20080104, end: 20080110
  5. CANDESARTAN CILEXETIL [Concomitant]
     Indication: HYPERTENSION
     Route: 048
     Dates: start: 20080104, end: 20080623
  6. RISPERDAL [Suspect]
     Indication: DELUSION
     Route: 048
     Dates: start: 20080104, end: 20080110

REACTIONS (2)
  - FEMORAL NECK FRACTURE [None]
  - FALL [None]
